FAERS Safety Report 17946563 (Version 1)
Quarter: 2020Q2

REPORT INFORMATION
  Report Type: Spontaneous
  Country: US (occurrence: US)
  Receive Date: 20200625
  Receipt Date: 20200625
  Transmission Date: 20200714
  Serious: Yes (Other)
  Sender: FDA-Public Use
  Company Number: US-JNJFOC-20200630198

PATIENT

DRUGS (1)
  1. ELMIRON [Suspect]
     Active Substance: PENTOSAN POLYSULFATE SODIUM
     Indication: PRODUCT USED FOR UNKNOWN INDICATION
     Route: 065

REACTIONS (80)
  - Macular hole [Unknown]
  - Papilloedema [Unknown]
  - Dizziness [Unknown]
  - Eye irritation [Unknown]
  - Vitreous floaters [Unknown]
  - Eye disorder [Unknown]
  - Cone dystrophy [Unknown]
  - Angle closure glaucoma [Unknown]
  - Haemorrhage [Unknown]
  - Episcleritis [Unknown]
  - Amblyopia [Unknown]
  - Astigmatism [Unknown]
  - Corrective lens user [Unknown]
  - Eye inflammation [Unknown]
  - Chromatopsia [Unknown]
  - Mass [Unknown]
  - Extraocular muscle disorder [Unknown]
  - Retinal detachment [Unknown]
  - Retinal tear [Unknown]
  - Age-related macular degeneration [Unknown]
  - Retinopathy [Unknown]
  - Presumed ocular histoplasmosis syndrome [Unknown]
  - Intracranial pressure increased [Unknown]
  - Eye ulcer [Unknown]
  - Asthenopia [Unknown]
  - Retinal disorder [Unknown]
  - Headache [Unknown]
  - Visual field defect [Unknown]
  - Fuchs^ syndrome [Unknown]
  - Glaucoma [Unknown]
  - Macular fibrosis [Unknown]
  - Choroidal dystrophy [Unknown]
  - Retinal haemorrhage [Unknown]
  - Vision blurred [Unknown]
  - Dry eye [Unknown]
  - Blepharitis [Unknown]
  - Night blindness [Unknown]
  - Lacrimation increased [Unknown]
  - Myopia [Unknown]
  - Dry age-related macular degeneration [Unknown]
  - Blindness [Unknown]
  - Corneal dystrophy [Unknown]
  - Retinal degeneration [Unknown]
  - Macular oedema [Unknown]
  - Eye haemorrhage [Unknown]
  - Uveitis [Unknown]
  - Maculopathy [Unknown]
  - Eye pain [Unknown]
  - Corneal deposits [Unknown]
  - Ulcerative keratitis [Unknown]
  - Vitreous detachment [Unknown]
  - Neovascular age-related macular degeneration [Unknown]
  - Blindness unilateral [Unknown]
  - Pigmentary glaucoma [Unknown]
  - Reading disorder [Unknown]
  - Photopsia [Unknown]
  - Meibomian gland dysfunction [Unknown]
  - Corneal abrasion [Unknown]
  - Photophobia [Unknown]
  - Colour blindness [Unknown]
  - Cataract [Unknown]
  - Macular telangiectasia [Unknown]
  - Visual impairment [Unknown]
  - Diplopia [Unknown]
  - Macular pigmentation [Unknown]
  - Optic disc drusen [Unknown]
  - Corneal erosion [Unknown]
  - Retinal drusen [Unknown]
  - Macular degeneration [Unknown]
  - Retinal dystrophy [Unknown]
  - Iridocyclitis [Unknown]
  - Tunnel vision [Unknown]
  - Vitreous haemorrhage [Unknown]
  - Optic neuritis [Unknown]
  - Retinal aneurysm [Unknown]
  - Migraine with aura [Unknown]
  - Glare [Unknown]
  - Eye infection viral [Unknown]
  - Pterygium [Unknown]
  - Adverse event [Unknown]
